APPROVED DRUG PRODUCT: POTASSIUM CHLORIDE 20MEQ IN DEXTROSE 5% AND SODIUM CHLORIDE 0.9% IN PLASTIC CONTAINER
Active Ingredient: DEXTROSE; POTASSIUM CHLORIDE; SODIUM CHLORIDE
Strength: 5GM/100ML;300MG/100ML;900MG/100ML
Dosage Form/Route: INJECTABLE;INJECTION
Application: N019308 | Product #003
Applicant: BAXTER HEALTHCARE CORP
Approved: Apr 5, 1985 | RLD: No | RS: No | Type: RX